FAERS Safety Report 18072033 (Version 2)
Quarter: 2020Q3

REPORT INFORMATION
  Report Type: Spontaneous
  Country: US (occurrence: US)
  Receive Date: 20200727
  Receipt Date: 20200729
  Transmission Date: 20201103
  Serious: Yes (Other)
  Sender: FDA-Public Use
  Company Number: US-PFIZER INC-2020282141

PATIENT
  Age: 64 Year
  Sex: Female

DRUGS (4)
  1. INLYTA [Suspect]
     Active Substance: AXITINIB
     Indication: RENAL CANCER
     Dosage: 1 MG, 1X/DAY (1 MG PER DAY AT DINNER TIME BY MOUTH)
     Route: 048
     Dates: start: 2020
  2. INLYTA [Suspect]
     Active Substance: AXITINIB
     Dosage: 2 MG, 2X/DAY (4 MG PER DAY, 2 MG TWICE PER DAY, ONCE IN THE MORNING AND ONCE AT NIGHT)
     Dates: end: 20200422
  3. KEYTRUDA [Concomitant]
     Active Substance: PEMBROLIZUMAB
     Dosage: UNK
     Dates: start: 2020, end: 20200422
  4. KEYTRUDA [Concomitant]
     Active Substance: PEMBROLIZUMAB
     Dosage: UNK
     Dates: start: 20200708

REACTIONS (18)
  - Arthralgia [Unknown]
  - Muscle disorder [Unknown]
  - Gastritis [Unknown]
  - Asthenia [Unknown]
  - Malabsorption [Unknown]
  - Pain [Unknown]
  - Nausea [Unknown]
  - Abdominal pain upper [Unknown]
  - Weight decreased [Recovering/Resolving]
  - Muscular weakness [Not Recovered/Not Resolved]
  - Pain in extremity [Unknown]
  - Pyrexia [Unknown]
  - Feeling cold [Unknown]
  - Fatigue [Unknown]
  - Myalgia [Unknown]
  - Gait inability [Unknown]
  - Gastrointestinal viral infection [Unknown]
  - Abdominal discomfort [Recovering/Resolving]

NARRATIVE: CASE EVENT DATE: 202004
